FAERS Safety Report 8451270-4 (Version None)
Quarter: 2012Q2

REPORT INFORMATION
  Report Type: 
  Country: None (occurrence: None)
  Receive Date: 20120620
  Receipt Date: 20120326
  Transmission Date: 20120825
  Serious: No
  Sender: FDA-Public Use
  Company Number: US-VERTEX PHARMACEUTICALS INC.-AE-2012-002192

PATIENT
  Sex: Male
  Weight: 119.86 kg

DRUGS (3)
  1. INCIVEK [Suspect]
     Indication: HEPATITIS C
     Route: 048
     Dates: start: 20120209
  2. PEGASYS [Concomitant]
     Indication: HEPATITIS C
     Route: 058
     Dates: start: 20120209
  3. RIBASPHERE [Concomitant]
     Indication: HEPATITIS C
     Route: 048
     Dates: start: 20120209

REACTIONS (10)
  - ALOPECIA [None]
  - ANORECTAL DISCOMFORT [None]
  - INSOMNIA [None]
  - DIARRHOEA [None]
  - ABNORMAL FAECES [None]
  - PRURITUS GENERALISED [None]
  - GENITAL BURNING SENSATION [None]
  - HAEMORRHOIDS [None]
  - FUNGAL SKIN INFECTION [None]
  - OROPHARYNGEAL PAIN [None]
